FAERS Safety Report 8340532-7 (Version None)
Quarter: 2012Q2

REPORT INFORMATION
  Report Type: 
  Country: None (occurrence: None)
  Receive Date: 20120507
  Receipt Date: 20120426
  Transmission Date: 20120825
  Serious: Yes (Other)
  Sender: FDA-Public Use
  Company Number: CA-JNJFOC-20120301328

PATIENT
  Sex: Female
  Weight: 69.8 kg

DRUGS (4)
  1. GABAPENTIN [Concomitant]
     Route: 065
  2. REMICADE [Suspect]
     Indication: CROHN'S DISEASE
     Route: 042
     Dates: start: 20120105, end: 20120105
  3. REMICADE [Suspect]
     Route: 042
     Dates: start: 20030201
  4. SEROQUEL [Concomitant]
     Route: 065

REACTIONS (7)
  - INFLUENZA LIKE ILLNESS [None]
  - PYREXIA [None]
  - DIARRHOEA [None]
  - MATERNAL EXPOSURE DURING PREGNANCY [None]
  - SINUS CONGESTION [None]
  - VOMITING [None]
  - NAUSEA [None]
